FAERS Safety Report 21365742 (Version 1)
Quarter: 2022Q3

REPORT INFORMATION
  Report Type: Spontaneous
  Country: IN (occurrence: IN)
  Receive Date: 20220922
  Receipt Date: 20220922
  Transmission Date: 20221027
  Serious: Yes (Death)
  Sender: FDA-Public Use
  Company Number: IN-MYLANLABS-2022M1095417

PATIENT
  Age: 46 Year
  Sex: Male

DRUGS (3)
  1. DOLUTEGRAVIR\LAMIVUDINE\TENOFOVIR DISOPROXIL FUMARATE [Suspect]
     Active Substance: DOLUTEGRAVIR\LAMIVUDINE\TENOFOVIR DISOPROXIL FUMARATE
     Indication: HIV infection
     Dosage: 1 DOSAGE FORM, QD (DOLUTEGRAVIR 50 + LAMIVUDINE 300 + TENOFOVIR-DISOPROXIL-FUMARATE?.
     Route: 065
  2. ARTESUNATE [Suspect]
     Active Substance: ARTESUNATE
     Indication: Toxoplasmosis
     Dosage: 50 MILLIGRAM, BID
     Route: 065
  3. ARTESUNATE [Suspect]
     Active Substance: ARTESUNATE
     Indication: Strongyloidiasis
     Dosage: UNK
     Route: 065

REACTIONS (1)
  - Drug ineffective [Fatal]
